FAERS Safety Report 17312793 (Version 4)
Quarter: 2020Q1

REPORT INFORMATION
  Report Type: Spontaneous
  Country: JP (occurrence: JP)
  Receive Date: 20200123
  Receipt Date: 20200318
  Transmission Date: 20200409
  Serious: Yes (Other)
  Sender: FDA-Public Use
  Company Number: JP-ASTELLAS-2020JP001134

PATIENT
  Age: 80 Year
  Sex: Male

DRUGS (1)
  1. BETANIS [Suspect]
     Active Substance: MIRABEGRON
     Indication: HYPERTONIC BLADDER
     Route: 048

REACTIONS (3)
  - Antineutrophil cytoplasmic antibody increased [Not Recovered/Not Resolved]
  - Cholestasis [Recovered/Resolved]
  - Blood alkaline phosphatase increased [Recovered/Resolved]
